FAERS Safety Report 10241920 (Version 2)
Quarter: 2014Q3

REPORT INFORMATION
  Report Type: Spontaneous
  Country: ES (occurrence: ES)
  Receive Date: 20140617
  Receipt Date: 20140729
  Transmission Date: 20150326
  Serious: Yes (Other)
  Sender: FDA-Public Use
  Company Number: ES-GLAXOSMITHKLINE-B1004244A

PATIENT
  Age: 67 Year
  Sex: Male

DRUGS (1)
  1. VOTRIENT [Suspect]
     Active Substance: PAZOPANIB HYDROCHLORIDE
     Indication: RENAL CELL CARCINOMA
     Dosage: 800MG PER DAY
     Route: 065
     Dates: start: 201006

REACTIONS (5)
  - Skin lesion [Unknown]
  - Subacute cutaneous lupus erythematosus [Recovering/Resolving]
  - Erythema [Unknown]
  - Lymphocytic infiltration [Unknown]
  - Parakeratosis [Unknown]
